FAERS Safety Report 11760224 (Version 1)
Quarter: 2015Q4

REPORT INFORMATION
  Report Type: Spontaneous
  Country: US (occurrence: US)
  Receive Date: 20151120
  Receipt Date: 20151120
  Transmission Date: 20160304
  Serious: No
  Sender: FDA-Public Use
  Company Number: US-ELI_LILLY_AND_COMPANY-US201209007693

PATIENT
  Sex: Female

DRUGS (1)
  1. FORTEO [Suspect]
     Active Substance: TERIPARATIDE
     Indication: OSTEOPOROSIS
     Dosage: 20 UG, QD
     Dates: start: 20120817, end: 20121104

REACTIONS (10)
  - Adverse drug reaction [Unknown]
  - Injection site bruising [Unknown]
  - Nausea [Unknown]
  - Muscle spasms [Not Recovered/Not Resolved]
  - Heart rate abnormal [Unknown]
  - Listless [Unknown]
  - Somnolence [Unknown]
  - Skin sensitisation [Unknown]
  - Pain [Unknown]
  - Fatigue [Not Recovered/Not Resolved]
